FAERS Safety Report 25722404 (Version 1)
Quarter: 2025Q3

REPORT INFORMATION
  Report Type: Spontaneous
  Country: BR (occurrence: BR)
  Receive Date: 20250825
  Receipt Date: 20250825
  Transmission Date: 20251020
  Serious: Yes (Other)
  Sender: PFIZER
  Company Number: BR-PFIZER INC-PV202500101521

PATIENT
  Age: 13 Year
  Sex: Male

DRUGS (1)
  1. SOMATROGON [Suspect]
     Active Substance: SOMATROGON
     Dates: start: 20250820

REACTIONS (4)
  - Syncope [Recovering/Resolving]
  - Discomfort [Unknown]
  - Abdominal discomfort [Unknown]
  - Incorrect dose administered [Unknown]

NARRATIVE: CASE EVENT DATE: 20250820
